FAERS Safety Report 13703138 (Version 1)
Quarter: 2017Q2

REPORT INFORMATION
  Report Type: Spontaneous
  Country: US (occurrence: US)
  Receive Date: 20170629
  Receipt Date: 20170629
  Transmission Date: 20170830
  Serious: Yes (Other)
  Sender: FDA-Public Use
  Company Number: US-FRESENIUS KABI-FK201705507

PATIENT
  Age: 2 Year
  Sex: Male

DRUGS (5)
  1. CISPLATIN (MANUFACTURER UNKNOWN) [Suspect]
     Active Substance: CISPLATIN
     Indication: BRAIN NEOPLASM MALIGNANT
     Route: 065
  2. TOPOTECAN [Suspect]
     Active Substance: TOPOTECAN HYDROCHLORIDE
     Indication: BRAIN NEOPLASM MALIGNANT
     Route: 042
  3. METHOTREXATE (MANUFACTURER UNKNOWN) [Suspect]
     Active Substance: METHOTREXATE
     Indication: BRAIN NEOPLASM MALIGNANT
     Route: 042
  4. VINCRISTINE [Suspect]
     Active Substance: VINCRISTINE
     Indication: BRAIN NEOPLASM MALIGNANT
  5. CYCLOPHOSPHAMIDE. [Suspect]
     Active Substance: CYCLOPHOSPHAMIDE
     Indication: BRAIN NEOPLASM MALIGNANT

REACTIONS (3)
  - Medication error [Recovered/Resolved]
  - Off label use [Recovered/Resolved]
  - Ascites [Recovered/Resolved]
